FAERS Safety Report 4896251-2 (Version None)
Quarter: 2006Q1

REPORT INFORMATION
  Report Type: 
  Country: None (occurrence: None)
  Receive Date: 20060126
  Receipt Date: 20060116
  Transmission Date: 20060701
  Serious: Yes (Hospitalization)
  Sender: FDA-Public Use
  Company Number: 2006-00167

PATIENT
  Age: 16 Year
  Sex: Male

DRUGS (3)
  1. METHYLPHENIDATE HYDROCHLORIDE (WATSON LABORATORIES) (METHYLPHENIDATE H [Suspect]
     Indication: ATTENTION DEFICIT/HYPERACTIVITY DISORDER
     Dosage: 30 MG, BID, ORAL
     Route: 048
  2. ERYTHROMYCIN [Suspect]
     Indication: ACNE
     Dosage: 999 MG, DAILY, ORAL
     Route: 048
  3. BUPROPION HYDROCHLORIDE SUSTAINED RELEASE (BUPROPION HYDROCHLORIDE) TA [Suspect]
     Indication: DEPRESSION
     Dosage: 100 MG, BID, ORAL
     Route: 048

REACTIONS (2)
  - ACUTE MYOCARDIAL INFARCTION [None]
  - DRUG INTERACTION [None]
